FAERS Safety Report 10222492 (Version 2)
Quarter: 2014Q3

REPORT INFORMATION
  Report Type: Spontaneous
  Country: BR (occurrence: BR)
  Receive Date: 20140606
  Receipt Date: 20140807
  Transmission Date: 20150326
  Serious: Yes (Hospitalization, Other)
  Sender: FDA-Public Use
  Company Number: BR-ROCHE-1410310

PATIENT
  Age: 56 Year
  Sex: Male
  Weight: 102 kg

DRUGS (6)
  1. RIBAVIRIN. [Suspect]
     Active Substance: RIBAVIRIN
     Dosage: 48 WEEKS COURSE TREATMENT SCHEDULED
     Route: 048
     Dates: start: 20140402
  2. PEGASYS [Suspect]
     Active Substance: PEGINTERFERON ALFA-2A
     Indication: HEPATITIS C
     Dosage: 48 WEEKS COURSE TREATMENT
     Route: 065
     Dates: start: 2005, end: 2005
  3. PEGASYS [Suspect]
     Active Substance: PEGINTERFERON ALFA-2A
     Dosage: 48 WEEKS COURSE TREATMENT
     Route: 065
     Dates: start: 20140402
  4. RIBAVIRIN. [Suspect]
     Active Substance: RIBAVIRIN
     Indication: HEPATITIS C
     Dosage: 48 WEEKS COURSE TREATMENT
     Route: 048
     Dates: start: 2005, end: 2005
  5. VICTRELIS [Suspect]
     Active Substance: BOCEPREVIR
     Indication: HEPATITIS C
     Route: 048
     Dates: start: 20140502
  6. PANTOPRAZOLE [Concomitant]
     Active Substance: PANTOPRAZOLE SODIUM
     Dosage: A TABLET IN THE MORNING AND ONE BEFORE DINNER
     Route: 048
     Dates: start: 2010

REACTIONS (7)
  - Arthropathy [Unknown]
  - Hypertension [Not Recovered/Not Resolved]
  - Dysgeusia [Recovering/Resolving]
  - Hepatitis C [Not Recovered/Not Resolved]
  - Gingivitis [Unknown]
  - Gastrooesophageal reflux disease [Not Recovered/Not Resolved]
  - Thirst [Recovering/Resolving]

NARRATIVE: CASE EVENT DATE: 2009
